FAERS Safety Report 8395208-7 (Version None)
Quarter: 2012Q2

REPORT INFORMATION
  Report Type: 
  Country: None (occurrence: None)
  Receive Date: 20120530
  Receipt Date: 20120517
  Transmission Date: 20120825
  Serious: Yes (Other)
  Sender: FDA-Public Use
  Company Number: US-BAYER-2012-050385

PATIENT

DRUGS (1)
  1. ALEVE (CAPLET) [Suspect]
     Route: 048

REACTIONS (6)
  - MUSCULOSKELETAL PAIN [None]
  - FEELING JITTERY [None]
  - DYSPEPSIA [None]
  - DYSPNOEA [None]
  - NERVOUSNESS [None]
  - PANIC ATTACK [None]
